FAERS Safety Report 24099764 (Version 1)
Quarter: 2024Q3

REPORT INFORMATION
  Report Type: Spontaneous
  Country: US (occurrence: US)
  Receive Date: 20240716
  Receipt Date: 20240716
  Transmission Date: 20241017
  Serious: No
  Sender: NOVO NORDISK
  Company Number: US-NOVOPROD-1217713

PATIENT
  Sex: Male

DRUGS (1)
  1. OZEMPIC [Suspect]
     Active Substance: SEMAGLUTIDE
     Indication: Product used for unknown indication
     Dosage: 4 WEEKS 0.25MG
     Route: 058

REACTIONS (3)
  - Proctitis ulcerative [Recovered/Resolved]
  - Condition aggravated [Recovered/Resolved]
  - Haematochezia [Recovered/Resolved]
